FAERS Safety Report 17740755 (Version 1)
Quarter: 2020Q2

REPORT INFORMATION
  Report Type: Other
  Country: GB (occurrence: GB)
  Receive Date: 20200504
  Receipt Date: 20200504
  Transmission Date: 20200714
  Serious: Yes (Other)
  Sender: FDA-Public Use
  Company Number: GB-STRIDES ARCOLAB LIMITED-2020SP005360

PATIENT
  Age: 1 Year
  Sex: Female

DRUGS (2)
  1. IBUPROFEN. [Suspect]
     Active Substance: IBUPROFEN
     Indication: PRODUCT USED FOR UNKNOWN INDICATION
     Dosage: UNK, TOOK UNKNOWN DOSE EVERY FOUR HOURS ALTERNATELY WITH CALPOL
     Route: 065
  2. CALPOL [Suspect]
     Active Substance: ACETAMINOPHEN
     Indication: PRODUCT USED FOR UNKNOWN INDICATION
     Dosage: UNK, TOOK UNKNOWN DOSE EVERY FOUR HOURS ALTERNATELY WITH NUROFEN FOR CHILDREN SINGLES UNKNOWN
     Route: 065

REACTIONS (1)
  - Coronavirus infection [Unknown]
